FAERS Safety Report 8136116-6 (Version None)
Quarter: 2012Q1

REPORT INFORMATION
  Report Type: 
  Country: None (occurrence: None)
  Receive Date: 20120214
  Receipt Date: 20120207
  Transmission Date: 20120608
  Serious: No
  Sender: FDA-Public Use
  Company Number: US-COVIDIEN/TYCO HEALTHCARE/MALLINCKRODT-T201200519

PATIENT
  Sex: Male
  Weight: 79.365 kg

DRUGS (6)
  1. CLONIDINE [Concomitant]
     Dosage: 0.1 MG, TID
  2. FENTANYL-100 [Suspect]
     Indication: BACK PAIN
     Dosage: 100 UG/HR, 1 FTS Q 3 DAYS
     Route: 062
     Dates: start: 20110901, end: 20120101
  3. FENTANYL-100 [Suspect]
     Dosage: 25 UG/HR, 1 FTS Q 3 DAYS
     Dates: start: 20110901, end: 20120101
  4. METHADONE HCL [Concomitant]
  5. LISINOPRIL [Concomitant]
     Dosage: 20 MG, QD
  6. DIAZEPAM [Concomitant]
     Dosage: UNK

REACTIONS (6)
  - DRUG EFFECT DECREASED [None]
  - APPLICATION SITE RASH [None]
  - VOMITING [None]
  - PARAESTHESIA [None]
  - INSOMNIA [None]
  - AGGRESSION [None]
